FAERS Safety Report 6360821-5 (Version None)
Quarter: 2009Q3

REPORT INFORMATION
  Report Type: 
  Country: None (occurrence: None)
  Receive Date: 20090918
  Receipt Date: 20090907
  Transmission Date: 20100115
  Serious: Yes (Other)
  Sender: FDA-Public Use
  Company Number: GB-ROCHE-655158

PATIENT
  Age: 10 Year
  Sex: Male

DRUGS (7)
  1. TAMIFLU [Suspect]
     Dosage: DOSE REPORTED : 60 MG TWICE A DAY FOR 5 DAYS.
     Route: 065
     Dates: start: 20090703, end: 20090725
  2. MERCAPTOPURINE [Concomitant]
  3. METHOTREXATE [Concomitant]
  4. DELLAMETHASONE [Concomitant]
  5. COTRIM [Concomitant]
  6. VALPROATE SODIUM [Concomitant]
  7. RANITIDINE [Concomitant]

REACTIONS (1)
  - THROMBOCYTOPENIA [None]
